FAERS Safety Report 8998595 (Version 2)
Quarter: 2013Q1

REPORT INFORMATION
  Report Type: Spontaneous
  Country: US (occurrence: US)
  Receive Date: 20130103
  Receipt Date: 20130201
  Transmission Date: 20140127
  Serious: No
  Sender: FDA-Public Use
  Company Number: US-PFIZER INC-2012334396

PATIENT
  Age: 48 Year
  Sex: Female

DRUGS (10)
  1. GENOTROPIN [Suspect]
     Indication: GROWTH HORMONE DEFICIENCY
     Dosage: 0.5 MG, 1X/DAY
     Route: 058
  2. PROTONIX [Concomitant]
     Dosage: UNK
  3. LEVOXYL [Concomitant]
     Dosage: 25 UG, UNK
  4. LEXAPRO [Concomitant]
     Dosage: 5 MG, UNK
  5. WELLBUTRIN [Concomitant]
     Dosage: 75 MG, UNK
  6. FLONASE [Concomitant]
     Dosage: 0.05 %, UNK
  7. VITAMIN D [Concomitant]
     Dosage: 400 UNK, UNK
  8. VENOFER [Concomitant]
     Dosage: 20 MG/ML
  9. FISH OIL [Concomitant]
     Dosage: UNK
  10. RESTASIS [Concomitant]
     Dosage: 0.05 %, UNK

REACTIONS (1)
  - Nasopharyngitis [Unknown]
